FAERS Safety Report 11330012 (Version 1)
Quarter: 2015Q3

REPORT INFORMATION
  Report Type: Report from Study
  Country: US (occurrence: US)
  Receive Date: 20150803
  Receipt Date: 20150803
  Transmission Date: 20151125
  Serious: Yes (Hospitalization, Other)
  Sender: FDA-Public Use
  Company Number: US-GILEAD-2015-0153637

PATIENT
  Age: 7 Year
  Sex: Female

DRUGS (4)
  1. AMBRISENTAN [Suspect]
     Active Substance: AMBRISENTAN
     Indication: MENINGITIS
  2. AMBRISENTAN [Suspect]
     Active Substance: AMBRISENTAN
     Indication: PULMONARY HYPERTENSION
     Dosage: 7.5 MG, QD
     Route: 065
     Dates: start: 20140912
  3. AMBRISENTAN [Suspect]
     Active Substance: AMBRISENTAN
     Indication: NEUROLOGICAL DECOMPENSATION
  4. REVATIO [Concomitant]
     Active Substance: SILDENAFIL CITRATE

REACTIONS (5)
  - Pseudomonas infection [Unknown]
  - Hypersensitivity [Unknown]
  - Off label use [Unknown]
  - Bacterial infection [Unknown]
  - Pneumonia [Unknown]
